FAERS Safety Report 21700659 (Version 1)
Quarter: 2022Q4

REPORT INFORMATION
  Report Type: Spontaneous
  Country: CN (occurrence: CN)
  Receive Date: 20221208
  Receipt Date: 20221208
  Transmission Date: 20230113
  Serious: Yes (Hospitalization)
  Sender: FDA-Public Use
  Company Number: CN-DSJP-DSJ-2022-143802AA

PATIENT
  Sex: Female

DRUGS (1)
  1. EDOXABAN [Suspect]
     Active Substance: EDOXABAN
     Indication: Thrombosis
     Dosage: 30 MG, QD
     Route: 048
     Dates: start: 20220622, end: 20220707

REACTIONS (3)
  - Lower gastrointestinal haemorrhage [Recovering/Resolving]
  - Dizziness [Recovering/Resolving]
  - Fatigue [Unknown]

NARRATIVE: CASE EVENT DATE: 20220101
